FAERS Safety Report 15539073 (Version 1)
Quarter: 2018Q4

REPORT INFORMATION
  Report Type: Spontaneous
  Country: JP (occurrence: JP)
  Receive Date: 20181022
  Receipt Date: 20181022
  Transmission Date: 20190205
  Serious: Yes (Other)
  Sender: FDA-Public Use
  Company Number: GXJP2018JP001568

PATIENT
  Sex: Male

DRUGS (1)
  1. RIFAMPICIN CAPSULES [Suspect]
     Active Substance: RIFAMPIN
     Indication: TUBERCULOSIS
     Dosage: UNK
     Route: 048

REACTIONS (4)
  - Glomerulonephritis rapidly progressive [Recovering/Resolving]
  - Henoch-Schonlein purpura [Recovering/Resolving]
  - Renal impairment [Recovering/Resolving]
  - Nephrotic syndrome [Recovering/Resolving]
